FAERS Safety Report 5378541-2 (Version None)
Quarter: 2007Q3

REPORT INFORMATION
  Report Type: 
  Country: None (occurrence: None)
  Receive Date: 20070705
  Receipt Date: 20070627
  Transmission Date: 20080115
  Serious: Yes (Hospitalization)
  Sender: FDA-Public Use
  Company Number: JP-ASTRAZENECA-2007AP02585

PATIENT
  Age: 30001 Day
  Sex: Female
  Weight: 47 kg

DRUGS (12)
  1. CRESTOR [Suspect]
     Indication: HYPERLIPIDAEMIA
     Route: 048
     Dates: start: 20061201, end: 20070419
  2. BEZATOL SR [Suspect]
     Indication: HYPERLIPIDAEMIA
     Route: 048
     Dates: start: 19990401, end: 20070419
  3. ALDACTONE [Concomitant]
     Route: 048
  4. CONIEL [Concomitant]
     Route: 048
  5. DIOVAN [Concomitant]
     Route: 048
  6. LASIX [Concomitant]
     Route: 048
  7. LENDORMIN [Concomitant]
     Route: 048
  8. ASPIRIN [Concomitant]
     Route: 048
  9. MESADORIN-S [Concomitant]
     Route: 048
  10. ACTONEL [Concomitant]
     Route: 048
  11. MOKU-BOI-TO [Concomitant]
     Route: 048
  12. TECIPUL [Concomitant]
     Route: 048

REACTIONS (1)
  - MYOPATHY [None]
